FAERS Safety Report 24831527 (Version 1)
Quarter: 2025Q1

REPORT INFORMATION
  Report Type: Spontaneous
  Country: US (occurrence: US)
  Receive Date: 20250110
  Receipt Date: 20250110
  Transmission Date: 20250408
  Serious: No
  Sender: SANOFI AVENTIS
  Company Number: US-SA-2025SA008598

PATIENT
  Age: 45 Year
  Sex: Female

DRUGS (1)
  1. DUPIXENT [Suspect]
     Active Substance: DUPILUMAB
     Indication: Eosinophilia
     Dosage: 300 MG, QW
     Route: 058

REACTIONS (5)
  - Injection site swelling [Unknown]
  - Injection site urticaria [Unknown]
  - Injection site discomfort [Unknown]
  - Injection site pain [Unknown]
  - Product use in unapproved indication [Unknown]
